FAERS Safety Report 25454214 (Version 1)
Quarter: 2025Q2

REPORT INFORMATION
  Report Type: Spontaneous
  Country: US (occurrence: US)
  Receive Date: 20250619
  Receipt Date: 20250619
  Transmission Date: 20250717
  Serious: No
  Sender: BRISTOL-MYERS SQUIBB COMPANY
  Company Number: US-BRISTOL-MYERS SQUIBB COMPANY-2025-085698

PATIENT
  Sex: Female

DRUGS (1)
  1. ELIQUIS [Suspect]
     Active Substance: APIXABAN
     Indication: Atrial fibrillation

REACTIONS (7)
  - Fatigue [Unknown]
  - Blood pressure decreased [Unknown]
  - Decreased appetite [Unknown]
  - Asthenia [Unknown]
  - Angiopathy [Unknown]
  - Weight increased [Unknown]
  - Blood pressure abnormal [Unknown]
